FAERS Safety Report 4684936-2 (Version None)
Quarter: 2005Q2

REPORT INFORMATION
  Report Type: 
  Country: None (occurrence: None)
  Receive Date: 20050603
  Receipt Date: 20050518
  Transmission Date: 20051028
  Serious: Yes (Other)
  Sender: FDA-Public Use
  Company Number: US134730

PATIENT
  Sex: Male

DRUGS (2)
  1. ENBREL [Suspect]
     Indication: RHEUMATOID ARTHRITIS
     Dosage: 25 MG, 2 IN 1 WEEKS;
  2. PREDNISONE TAB [Suspect]
     Dosage: 5 MG, 1 IN 1 DAY;

REACTIONS (2)
  - HELMINTHIC INFECTION [None]
  - STRONGYLOIDIASIS [None]
